FAERS Safety Report 6394942-8 (Version None)
Quarter: 2009Q4

REPORT INFORMATION
  Report Type: 
  Country: None (occurrence: None)
  Receive Date: 20091009
  Receipt Date: 20090929
  Transmission Date: 20100525
  Serious: Yes (Disabling)
  Sender: FDA-Public Use
  Company Number: DE-PFIZER INC-2009275446

PATIENT
  Age: 43 Year

DRUGS (3)
  1. FARMORUBICIN [Suspect]
     Indication: BREAST CANCER FEMALE
     Dosage: UNK
     Route: 042
     Dates: start: 20060101
  2. FLUOROURACIL [Suspect]
     Indication: BREAST CANCER FEMALE
     Dosage: UNK
     Route: 042
     Dates: start: 20060101
  3. CYCLOPHOSPHAMIDE [Suspect]
     Indication: BREAST CANCER FEMALE
     Dosage: UNK
     Route: 042
     Dates: start: 20060101

REACTIONS (2)
  - DYSAESTHESIA [None]
  - HYPOAESTHESIA [None]
